FAERS Safety Report 16797172 (Version 1)
Quarter: 2019Q3

REPORT INFORMATION
  Report Type: Spontaneous
  Country: US (occurrence: US)
  Receive Date: 20190912
  Receipt Date: 20190912
  Transmission Date: 20191005
  Serious: No
  Sender: FDA-Public Use
  Company Number: US-JNJFOC-20190910662

PATIENT
  Sex: Male

DRUGS (1)
  1. MENS ROGAINE EXTRA STRENGTH [Suspect]
     Active Substance: MINOXIDIL
     Indication: ALOPECIA
     Dosage: ABOUT 1/2 CUP, OR A SMALL FOAM AMOUNT
     Route: 061

REACTIONS (3)
  - Hair colour changes [Recovered/Resolved]
  - Incorrect dose administered [Unknown]
  - Application site discolouration [Recovered/Resolved]
